FAERS Safety Report 5233261-X (Version None)
Quarter: 2007Q1

REPORT INFORMATION
  Report Type: 
  Country: None (occurrence: None)
  Receive Date: 20070206
  Receipt Date: 20070125
  Transmission Date: 20070707
  Serious: Yes (Hospitalization)
  Sender: FDA-Public Use
  Company Number: 235164

PATIENT
  Age: 73 Year
  Sex: Female

DRUGS (15)
  1. AVASTIN [Suspect]
     Indication: OVARIAN CANCER
     Dosage: 660 MG, INTRAVENOUS
     Route: 042
     Dates: start: 20070105, end: 20070105
  2. CARBOPLATIN [Suspect]
     Indication: OVARIAN CANCER
     Dosage: 167 MG, INTRAVENOUS
     Route: 042
     Dates: start: 20070105, end: 20070105
  3. GEMCITABINE [Suspect]
     Indication: OVARIAN CANCER
     Dosage: 1700 MG, INTRAVENOUS
     Route: 042
     Dates: start: 20070105, end: 20070105
  4. ANZEMET [Concomitant]
  5. DECADRON [Concomitant]
  6. CELEBREX [Concomitant]
  7. PLAVIX [Concomitant]
  8. PLENDIL [Concomitant]
  9. LEVOXYL [Concomitant]
  10. PRINIVIL [Concomitant]
  11. ATIVAN [Concomitant]
  12. REGLAN [Concomitant]
  13. OMEPRAZOLE [Concomitant]
  14. DARVOCET-N (ACETAMINOPHEN, PROPOXYPHENE NAPSYLATE) [Concomitant]
  15. COLACE (DOCUSATE SODIUM) [Concomitant]

REACTIONS (13)
  - BACK PAIN [None]
  - BLOOD GLUCOSE INCREASED [None]
  - BLOOD POTASSIUM INCREASED [None]
  - BLOOD SODIUM DECREASED [None]
  - CHEST PAIN [None]
  - DISEASE PROGRESSION [None]
  - DYSURIA [None]
  - FALL [None]
  - HYDRONEPHROSIS [None]
  - LYMPHADENOPATHY [None]
  - METASTASES TO LIVER [None]
  - PERITONEAL DISORDER [None]
  - PLATELET COUNT DECREASED [None]
